FAERS Safety Report 6892933-1 (Version None)
Quarter: 2010Q3

REPORT INFORMATION
  Report Type: 
  Country: None (occurrence: None)
  Receive Date: 20100731
  Receipt Date: 20081119
  Transmission Date: 20110219
  Serious: No
  Sender: FDA-Public Use
  Company Number: US-PFIZER INC-2008098128

PATIENT
  Sex: Male

DRUGS (9)
  1. DEPO-MEDROL [Suspect]
     Indication: ARTHRITIS
     Dates: start: 20080101
  2. LIPITOR [Concomitant]
  3. CARDIAC THERAPY [Concomitant]
  4. CARDIOVASCULAR SYSTEM DRUGS [Concomitant]
  5. DRUG USED IN DIABETES [Concomitant]
  6. SYSTANE [Concomitant]
     Route: 047
  7. DEXAMETHASONE [Concomitant]
     Dates: start: 20080101, end: 20080101
  8. MARCAINE [Concomitant]
     Dates: start: 20080101, end: 20080101
  9. AMERICAINE [Concomitant]

REACTIONS (2)
  - DRUG INEFFECTIVE [None]
  - UNEVALUABLE EVENT [None]
